FAERS Safety Report 5089924-2 (Version None)
Quarter: 2006Q3

REPORT INFORMATION
  Report Type: 
  Country: None (occurrence: None)
  Receive Date: 20060823
  Receipt Date: 20060807
  Transmission Date: 20061208
  Serious: No
  Sender: FDA-Public Use
  Company Number: US200606004808

PATIENT
  Age: 66 Year
  Sex: Female
  Weight: 71.2 kg

DRUGS (7)
  1. CYMBALTA [Suspect]
     Indication: DEPRESSION
     Dosage: 30 MG; SEE IMAGE
     Dates: end: 20060201
  2. CYMBALTA [Suspect]
     Indication: DEPRESSION
     Dosage: 30 MG; SEE IMAGE
     Dates: start: 20050428, end: 20060202
  3. METHOTREXATE [Concomitant]
  4. FOLIC ACID [Concomitant]
  5. PREMARIN [Concomitant]
  6. CALCIUM (CALCIUM) [Concomitant]
  7. FIBERCON (POLYCARBOPHIL CALCIUM) [Concomitant]

REACTIONS (8)
  - ABDOMINAL PAIN [None]
  - ANOREXIA [None]
  - CONFUSIONAL STATE [None]
  - HEPATOTOXICITY [None]
  - INFLUENZA LIKE ILLNESS [None]
  - NAUSEA [None]
  - SOMNOLENCE [None]
  - VOMITING [None]
